FAERS Safety Report 20693797 (Version 1)
Quarter: 2022Q2

REPORT INFORMATION
  Report Type: Spontaneous
  Country: US (occurrence: US)
  Receive Date: 20220411
  Receipt Date: 20220411
  Transmission Date: 20220721
  Serious: Yes (Other)
  Sender: FDA-Public Use
  Company Number: US-BEIGENE-BGN-2022-003500

PATIENT

DRUGS (1)
  1. BRUKINSA [Suspect]
     Active Substance: ZANUBRUTINIB
     Indication: Chronic lymphocytic leukaemia
     Dosage: 160 MILLIGRAM, BID, ONLY TAKEN TWICE
     Dates: end: 20220331

REACTIONS (11)
  - Atrial fibrillation [Unknown]
  - Head discomfort [Unknown]
  - Tremor [Unknown]
  - Discomfort [Unknown]
  - Diarrhoea [Unknown]
  - Feeling abnormal [Unknown]
  - Asthenia [Unknown]
  - Drug intolerance [Unknown]
  - Throat irritation [Unknown]
  - Off label use [Unknown]
  - Intentional dose omission [Unknown]
